FAERS Safety Report 9410766 (Version 1)
Quarter: 2013Q3

REPORT INFORMATION
  Report Type: Spontaneous
  Country: US (occurrence: US)
  Receive Date: 20130719
  Receipt Date: 20130719
  Transmission Date: 20140515
  Serious: Yes (Hospitalization, Other)
  Sender: FDA-Public Use
  Company Number: US-ELI_LILLY_AND_COMPANY-US201307004291

PATIENT
  Sex: 0

DRUGS (2)
  1. INSULIN HUMAN [Suspect]
     Dosage: UNK UNK, OTHER
     Route: 064
     Dates: end: 1988
  2. HUMULIN NPH [Suspect]
     Dosage: UNK, OTHER
     Route: 064
     Dates: end: 1988

REACTIONS (2)
  - Premature baby [Recovered/Resolved]
  - Foetal exposure during pregnancy [Recovered/Resolved]
